FAERS Safety Report 7040951-5 (Version None)
Quarter: 2010Q4

REPORT INFORMATION
  Report Type: 
  Country: None (occurrence: None)
  Receive Date: 20101007
  Receipt Date: 20090923
  Transmission Date: 20110411
  Serious: Yes (Hospitalization, Other)
  Sender: FDA-Public Use
  Company Number: 2009-200466-NL

PATIENT
  Age: 19 Year
  Sex: Female
  Weight: 143.7903 kg

DRUGS (1)
  1. NUVARING [Suspect]
     Indication: CONTRACEPTION
     Dates: start: 20070601, end: 20071001

REACTIONS (17)
  - DEPRESSION [None]
  - DEVICE EXPULSION [None]
  - DRUG ABUSER [None]
  - DRUG EXPOSURE DURING PREGNANCY [None]
  - HAEMATURIA [None]
  - HAEMOPTYSIS [None]
  - NAUSEA [None]
  - PARAESTHESIA [None]
  - PLEURAL EFFUSION [None]
  - PREGNANCY WITH CONTRACEPTIVE DEVICE [None]
  - PULMONARY EMBOLISM [None]
  - SELF-INJURIOUS IDEATION [None]
  - SUICIDAL IDEATION [None]
  - THYROID DISORDER [None]
  - TREATMENT NONCOMPLIANCE [None]
  - URINARY TRACT INFECTION [None]
  - WEIGHT INCREASED [None]
